FAERS Safety Report 20044968 (Version 1)
Quarter: 2021Q4

REPORT INFORMATION
  Report Type: Spontaneous
  Country: JP (occurrence: JP)
  Receive Date: 20211108
  Receipt Date: 20211108
  Transmission Date: 20220303
  Serious: Yes (Hospitalization, Other)
  Sender: FDA-Public Use
  Company Number: JP-BRISTOL-MYERS SQUIBB COMPANY-BMS-2019-114003

PATIENT
  Age: 84 Year
  Sex: Male
  Weight: 49.2 kg

DRUGS (1)
  1. OPDIVO [Suspect]
     Active Substance: NIVOLUMAB
     Indication: Metastatic renal cell carcinoma
     Dosage: 240 MILLIGRAM
     Route: 041
     Dates: start: 20190619, end: 20191120

REACTIONS (2)
  - Immune-mediated uveitis [Recovering/Resolving]
  - Papilloedema [Recovered/Resolved]

NARRATIVE: CASE EVENT DATE: 20190920
